FAERS Safety Report 4961320-5 (Version None)
Quarter: 2006Q1

REPORT INFORMATION
  Report Type: 
  Country: None (occurrence: None)
  Receive Date: 20060327
  Receipt Date: 20060309
  Transmission Date: 20060701
  Serious: Yes (Life-Threatening)
  Sender: FDA-Public Use
  Company Number: THYM-10895

PATIENT
  Age: 65 Year
  Sex: Male
  Weight: 114.4 kg

DRUGS (16)
  1. THYMOGLOBULIN [Suspect]
     Indication: LIVER TRANSPLANT
     Dosage: 175 MG QD IV
     Route: 042
     Dates: start: 20060226, end: 20060228
  2. THYMOGLOBULIN [Suspect]
     Indication: LIVER TRANSPLANT
     Dosage: 175 MG QD IV
     Route: 042
     Dates: start: 20060302, end: 20060302
  3. FLAGYL [Concomitant]
  4. ADVAIR DISKUS 100/50 [Concomitant]
  5. LACTULOSE [Concomitant]
  6. MIDORDRINE [Concomitant]
  7. OCTREOTIDE [Concomitant]
  8. PROTONIX [Concomitant]
  9. MEPHYTON [Concomitant]
  10. ULTRAM [Concomitant]
  11. ALBUTEROL [Concomitant]
  12. CELLCEPT [Concomitant]
  13. CEFIZOX [Concomitant]
  14. SOLU-MEDROL [Concomitant]
  15. ACETAMINOPHEN [Concomitant]
  16. BENADRYL [Concomitant]

REACTIONS (10)
  - BLOOD POTASSIUM INCREASED [None]
  - CARDIAC MASSAGE [None]
  - COMPLICATIONS OF TRANSPLANTED LIVER [None]
  - EJECTION FRACTION DECREASED [None]
  - ELECTROMECHANICAL DISSOCIATION [None]
  - PERICARDIOTOMY [None]
  - PROCEDURAL COMPLICATION [None]
  - RESUSCITATION [None]
  - VENTRICULAR HYPOKINESIA [None]
  - VENTRICULAR TACHYCARDIA [None]
